FAERS Safety Report 14796753 (Version 2)
Quarter: 2018Q3

REPORT INFORMATION
  Report Type: Report from Study
  Country: US (occurrence: US)
  Receive Date: 20180423
  Receipt Date: 20180723
  Transmission Date: 20181010
  Serious: No
  Sender: FDA-Public Use
  Company Number: US-AMGEN-USASP2018045071

PATIENT
  Age: 56 Year
  Sex: Male

DRUGS (1)
  1. REPATHA [Suspect]
     Active Substance: EVOLOCUMAB
     Indication: LOW DENSITY LIPOPROTEIN INCREASED
     Dosage: 140 MG, Q2WK
     Route: 065
     Dates: start: 20180328

REACTIONS (10)
  - Musculoskeletal stiffness [Unknown]
  - Fatigue [Unknown]
  - Chills [Unknown]
  - Blood pressure increased [Not Recovered/Not Resolved]
  - Nausea [Unknown]
  - Hyperhidrosis [Unknown]
  - Rhinorrhoea [Unknown]
  - Myalgia [Unknown]
  - Headache [Not Recovered/Not Resolved]
  - Cold sweat [Unknown]

NARRATIVE: CASE EVENT DATE: 20180330
